FAERS Safety Report 4578044-9 (Version None)
Quarter: 2005Q1

REPORT INFORMATION
  Report Type: 
  Country: None (occurrence: None)
  Receive Date: 20050209
  Receipt Date: 20050128
  Transmission Date: 20050727
  Serious: Yes (Death, Life-Threatening, Hospitalization, Other)
  Sender: FDA-Public Use
  Company Number: DE_031212565

PATIENT
  Age: 47 Year
  Sex: Male

DRUGS (4)
  1. GEMZAR [Suspect]
     Indication: NON-HODGKIN'S LYMPHOMA RECURRENT
     Dosage: 1000 MG/M2/PER INFUSION OTHER
     Route: 050
     Dates: start: 20030404, end: 20030702
  2. VINORELBINE [Concomitant]
  3. METHOTREXATE [Concomitant]
  4. DEXAMETHASONE [Concomitant]

REACTIONS (6)
  - BONE MARROW DEPRESSION [None]
  - HAEMODIALYSIS [None]
  - HAEMOLYTIC URAEMIC SYNDROME [None]
  - LYMPHOMA [None]
  - MALIGNANT NEOPLASM PROGRESSION [None]
  - MULTI-ORGAN FAILURE [None]
